FAERS Safety Report 19266648 (Version 1)
Quarter: 2021Q2

REPORT INFORMATION
  Report Type: Spontaneous
  Country: US (occurrence: US)
  Receive Date: 20210518
  Receipt Date: 20210518
  Transmission Date: 20210717
  Serious: Yes (Hospitalization, Other)
  Sender: FDA-Public Use
  Company Number: US-CIPLA LTD.-2021US03520

PATIENT

DRUGS (8)
  1. CARBOPLATIN. [Suspect]
     Active Substance: CARBOPLATIN
     Indication: CONGENITAL RETINOBLASTOMA
     Dosage: UNK
     Dates: start: 2016
  2. MELPHALAN. [Suspect]
     Active Substance: MELPHALAN
     Dosage: 20 MICROGRAMS, UNK
     Route: 047
     Dates: start: 2017
  3. MELPHALAN. [Suspect]
     Active Substance: MELPHALAN
     Indication: CONGENITAL RETINOBLASTOMA
     Dosage: 3 MILLIGRAM, UNK
     Route: 013
     Dates: start: 2017
  4. MELPHALAN. [Suspect]
     Active Substance: MELPHALAN
     Dosage: 20 MICROGRAMS, UNK (SECOND INJECTION)
     Route: 047
     Dates: start: 2018, end: 201901
  5. ETOPOSIDE. [Suspect]
     Active Substance: ETOPOSIDE
     Indication: CONGENITAL RETINOBLASTOMA
     Dosage: UNK
     Dates: start: 2016
  6. CARBOPLATIN. [Suspect]
     Active Substance: CARBOPLATIN
     Dosage: 30 MILLIGRAM, UNK
     Route: 013
     Dates: start: 2017
  7. TOPOTECAN [Suspect]
     Active Substance: TOPOTECAN HYDROCHLORIDE
     Indication: CONGENITAL RETINOBLASTOMA
     Dosage: 0.3 MILLIGRAM, UNK
     Route: 013
     Dates: start: 2017
  8. VINCRISTINE [Suspect]
     Active Substance: VINCRISTINE
     Indication: CONGENITAL RETINOBLASTOMA
     Dosage: UNK
     Dates: start: 2016

REACTIONS (5)
  - Macular fibrosis [Unknown]
  - Retinopathy proliferative [Unknown]
  - Retinopathy haemorrhagic [Unknown]
  - Atrophy of globe [Unknown]
  - Retinal degeneration [Unknown]

NARRATIVE: CASE EVENT DATE: 2018
